FAERS Safety Report 13581270 (Version 3)
Quarter: 2017Q3

REPORT INFORMATION
  Report Type: Report from Study
  Country: GB (occurrence: GB)
  Receive Date: 20170525
  Receipt Date: 20170712
  Transmission Date: 20171127
  Serious: Yes (Other)
  Sender: FDA-Public Use
  Company Number: GB-VERTEX PHARMACEUTICALS-2017-002739

PATIENT
  Age: 32 Year
  Sex: Male

DRUGS (13)
  1. CAYSTON [Concomitant]
     Active Substance: AZTREONAM
     Dosage: ALTERNATE MONTH
  2. CREON [Concomitant]
     Active Substance: PANCRELIPASE AMYLASE\PANCRELIPASE LIPASE\PANCRELIPASE PROTEASE
     Dosage: 5 WITH MEALS 1-3 WITH SNACKS
  3. ORKAMBI [Suspect]
     Active Substance: IVACAFTOR\LUMACAFTOR
     Indication: CYSTIC FIBROSIS
     Dosage: 2 DF (200-125 MG), BID
     Route: 048
     Dates: start: 20170314
  4. HYPERTONIC SALINE SOLUTION [Concomitant]
     Active Substance: SODIUM CHLORIDE
     Dosage: BEFORE 7%, 4 MLS BID
  5. VITAMIN E [Concomitant]
     Active Substance: .ALPHA.-TOCOPHEROL
     Dosage: 1 DF, QD
  6. LACTULOSE. [Concomitant]
     Active Substance: LACTULOSE
     Dosage: 10 ML, PRN
  7. LANSOPRAZOLE. [Concomitant]
     Active Substance: LANSOPRAZOLE
     Dosage: 30 MG, QD
  8. SYMBICORT [Concomitant]
     Active Substance: BUDESONIDE\FORMOTEROL FUMARATE DIHYDRATE
     Dosage: 2 DF, BID
  9. AZITHROMYCIN ANHYDROUS. [Concomitant]
     Active Substance: AZITHROMYCIN ANHYDROUS
     Dosage: 500 MG, MONDAY, WEDNESDAY AND FRIDAY
  10. NASONEX [Concomitant]
     Active Substance: MOMETASONE FUROATE
     Dosage: 2 DF, BID
  11. VITAMIN A AND D [Concomitant]
     Active Substance: LANOLIN\PETROLATUM
     Dosage: 2 DF, QD
  12. DOMPERIDONE [Concomitant]
     Active Substance: DOMPERIDONE
     Dosage: ONE TABLET MANE
  13. DORNASE ALFA. [Concomitant]
     Active Substance: DORNASE ALFA
     Dosage: .5 MG, QD

REACTIONS (1)
  - Staphylococcus test positive [Recovered/Resolved]

NARRATIVE: CASE EVENT DATE: 20170503
